FAERS Safety Report 5566705-4 (Version None)
Quarter: 2007Q4

REPORT INFORMATION
  Report Type: 
  Country: None (occurrence: None)
  Receive Date: 20071219
  Receipt Date: 20071212
  Transmission Date: 20080405
  Serious: Yes (Hospitalization)
  Sender: FDA-Public Use
  Company Number: US-MERCK-0712USA03844

PATIENT
  Age: 36 Year
  Sex: Female

DRUGS (5)
  1. ZETIA [Suspect]
     Indication: HYPERCHOLESTEROLAEMIA
     Route: 048
     Dates: start: 20070601, end: 20070101
  2. PAXIL [Concomitant]
     Route: 065
  3. NEURONTIN [Concomitant]
     Route: 065
  4. [THERAPY UNSPECIFIED] [Concomitant]
     Route: 065
  5. [THERAPY UNSPECIFIED] [Concomitant]
     Route: 065

REACTIONS (7)
  - DYSARTHRIA [None]
  - INSOMNIA [None]
  - MENTAL DISORDER [None]
  - MUSCLE TIGHTNESS [None]
  - OVERDOSE [None]
  - PAIN IN EXTREMITY [None]
  - THINKING ABNORMAL [None]
